FAERS Safety Report 7133382-0 (Version None)
Quarter: 2010Q4

REPORT INFORMATION
  Report Type: 
  Country: None (occurrence: None)
  Receive Date: 20101117
  Receipt Date: 20101026
  Transmission Date: 20110411
  Serious: No
  Sender: FDA-Public Use
  Company Number: 2010-00909

PATIENT
  Age: 29 Year
  Sex: Male

DRUGS (1)
  1. ZICAM COLD REMEDY ZAVORS [Suspect]
     Dosage: QID X 2 DAYS
     Dates: start: 20101025, end: 20101026

REACTIONS (2)
  - AGEUSIA [None]
  - ANOSMIA [None]
